FAERS Safety Report 6302906-5 (Version None)
Quarter: 2009Q3

REPORT INFORMATION
  Report Type: 
  Country: None (occurrence: None)
  Receive Date: 20090810
  Receipt Date: 20090803
  Transmission Date: 20100115
  Serious: Yes (Hospitalization, Other)
  Sender: FDA-Public Use
  Company Number: FR-ELI_LILLY_AND_COMPANY-FR200908000077

PATIENT
  Sex: Male

DRUGS (6)
  1. BYETTA [Suspect]
     Indication: TYPE 2 DIABETES MELLITUS
     Dosage: 10 UG, 2/D
     Route: 058
     Dates: start: 20081101, end: 20090619
  2. CARDENSIEL [Concomitant]
     Dosage: UNK, UNKNOWN
     Route: 048
  3. LYRICA [Concomitant]
     Dosage: UNK, UNKNOWN
     Route: 048
  4. INIPOMP [Concomitant]
     Indication: HYPERTENSION
     Dosage: UNK, UNKNOWN
     Route: 048
  5. GLUCOPHAGE [Concomitant]
     Dosage: 1000 MG, 3/D
     Route: 048
  6. SIMVASTATIN [Concomitant]
     Dosage: UNK, UNKNOWN
     Route: 048

REACTIONS (2)
  - CALCULUS URINARY [None]
  - HEPATIC NEOPLASM MALIGNANT [None]
